FAERS Safety Report 25498775 (Version 1)
Quarter: 2025Q3

REPORT INFORMATION
  Report Type: Report from Study
  Country: IN (occurrence: IN)
  Receive Date: 20250701
  Receipt Date: 20250701
  Transmission Date: 20251020
  Serious: Yes (Death)
  Sender: ROCHE
  Company Number: IN-ROCHE-10000324659

PATIENT
  Age: 51 Year
  Sex: Female
  Weight: 50 kg

DRUGS (1)
  1. POLIVY [Suspect]
     Active Substance: POLATUZUMAB VEDOTIN-PIIQ
     Indication: Product used for unknown indication
     Route: 065

REACTIONS (3)
  - Haematemesis [Fatal]
  - Respiratory failure [Fatal]
  - Cerebral disorder [Fatal]

NARRATIVE: CASE EVENT DATE: 20250620
